FAERS Safety Report 8784569 (Version 2)
Quarter: 2014Q1

REPORT INFORMATION
  Report Type: Spontaneous
  Country: FR (occurrence: None)
  Receive Date: 20120827
  Receipt Date: 20140127
  Transmission Date: 20141002
  Serious: Yes (Death, Hospitalization)
  Sender: FDA-Public Use
  Company Number: 2012200328

PATIENT
  Age: 79 Year
  Sex: Male

DRUGS (3)
  1. FRAGMINE (DALTEPARIN SODIUM) SOLUTION FOR INJECTION [Suspect]
     Route: 058
     Dates: start: 20120224, end: 20120304
  2. HEPARIN SODIUM (HEPARIN SODIUM) [Suspect]
     Route: 042
     Dates: start: 20120306, end: 20120313
  3. CALCIPARIN (HEPARIN CALCIUM) [Suspect]
     Route: 058
     Dates: start: 20120304, end: 20120304

REACTIONS (1)
  - Heparin-induced thrombocytopenia [None]
